FAERS Safety Report 25450240 (Version 2)
Quarter: 2025Q3

REPORT INFORMATION
  Report Type: Spontaneous
  Country: JP (occurrence: JP)
  Receive Date: 20250618
  Receipt Date: 20250702
  Transmission Date: 20251020
  Serious: No
  Sender: AMGEN
  Company Number: JP-AMGEN-JPNSP2025116717

PATIENT
  Age: 9 Decade
  Sex: Female

DRUGS (2)
  1. EVENITY [Suspect]
     Active Substance: ROMOSOZUMAB-AQQG
     Indication: Product used for unknown indication
     Route: 058
  2. ALENDRONATE [Concomitant]
     Active Substance: ALENDRONATE SODIUM
     Route: 065

REACTIONS (2)
  - Mental disorder [Unknown]
  - Ill-defined disorder [Unknown]
